FAERS Safety Report 25447085 (Version 3)
Quarter: 2025Q3

REPORT INFORMATION
  Report Type: Spontaneous
  Country: US (occurrence: US)
  Receive Date: 20250617
  Receipt Date: 20250716
  Transmission Date: 20251021
  Serious: No
  Sender: SANOFI AVENTIS
  Company Number: US-SA-2025SA168813

PATIENT
  Age: 56 Year
  Sex: Female
  Weight: 80.91 kg

DRUGS (12)
  1. DUPIXENT [Suspect]
     Active Substance: DUPILUMAB
     Indication: Dermatitis atopic
     Dosage: 300 MG, QOW
     Route: 058
  2. SIMVASTATIN [Concomitant]
     Active Substance: SIMVASTATIN
  3. SERTRALINE HYDROCHLORIDE [Concomitant]
     Active Substance: SERTRALINE HYDROCHLORIDE
  4. METOPROLOL SUCCINATE [Concomitant]
     Active Substance: METOPROLOL SUCCINATE
  5. SYNTHROID [Concomitant]
     Active Substance: LEVOTHYROXINE SODIUM
  6. GABAPENTIN [Concomitant]
     Active Substance: GABAPENTIN
  7. FUROSEMIDE [Concomitant]
     Active Substance: FUROSEMIDE
  8. FLECAINIDE ACETATE [Concomitant]
     Active Substance: FLECAINIDE ACETATE
  9. ELIQUIS [Concomitant]
     Active Substance: APIXABAN
  10. ALPRAZOLAM [Concomitant]
     Active Substance: ALPRAZOLAM
  11. ALPRAZOLAM ER [Concomitant]
     Active Substance: ALPRAZOLAM
  12. ELIQUIS [Concomitant]
     Active Substance: APIXABAN

REACTIONS (7)
  - Nervous system disorder [Unknown]
  - Weight decreased [Unknown]
  - Peripheral swelling [Unknown]
  - Spinal operation [Unknown]
  - Hypersensitivity [Unknown]
  - Dermatitis atopic [Not Recovered/Not Resolved]
  - Adverse drug reaction [Unknown]

NARRATIVE: CASE EVENT DATE: 20241101
